FAERS Safety Report 5195726-9 (Version None)
Quarter: 2007Q1

REPORT INFORMATION
  Report Type: 
  Country: None (occurrence: None)
  Receive Date: 20070102
  Receipt Date: 20061219
  Transmission Date: 20070707
  Serious: Yes (Hospitalization)
  Sender: FDA-Public Use
  Company Number: FR-ROCHE-469275

PATIENT
  Age: 64 Year
  Sex: Female
  Weight: 92 kg

DRUGS (3)
  1. XENICAL [Suspect]
     Route: 065
     Dates: start: 20040108, end: 20040622
  2. PRAVASTATIN [Concomitant]
  3. SOTALOL HYDROCHLORIDE [Concomitant]

REACTIONS (1)
  - SCLERODERMA [None]
